FAERS Safety Report 8890477 (Version 1)
Quarter: 2012Q4

REPORT INFORMATION
  Report Type: Report from Study
  Country: JP (occurrence: JP)
  Receive Date: 20121107
  Receipt Date: 20121107
  Transmission Date: 20130627
  Serious: Yes (Hospitalization, Other)
  Sender: FDA-Public Use
  Company Number: JP-009507513-2012SP036390

PATIENT
  Age: 67 Year
  Sex: Female
  Weight: 58 kg

DRUGS (18)
  1. PEGINTERFERON ALFA-2B [Suspect]
     Indication: HEPATITIS C
     Dosage: 1.2 ?g/kg, QW
     Route: 058
     Dates: start: 20120502, end: 20120509
  2. PEGINTERFERON ALFA-2B [Suspect]
     Dosage: 70 ?g/kg, QW
     Route: 058
     Dates: start: 20120516, end: 20120516
  3. PEGINTERFERON ALFA-2B [Suspect]
     Dosage: 80 ?g/kg, QW
     Route: 058
     Dates: start: 20120523, end: 20120613
  4. REBETOL [Suspect]
     Indication: HEPATITIS C
     Dosage: 600 mg, QD
     Route: 048
     Dates: start: 20120502, end: 20120524
  5. REBETOL [Suspect]
     Dosage: 400 mg, QD
     Route: 048
     Dates: start: 20120525, end: 20120606
  6. REBETOL [Suspect]
     Dosage: 200 mg, QD
     Route: 048
     Dates: start: 20120606, end: 20120615
  7. TELAVIC [Suspect]
     Indication: HEPATITIS C
     Dosage: 2250 mg, QD
     Route: 048
     Dates: start: 20120502, end: 20120606
  8. TELAVIC [Suspect]
     Dosage: 1500 mg, QD
     Route: 048
     Dates: start: 20120606, end: 20120615
  9. URSO [Concomitant]
     Indication: HEPATITIS C
     Dosage: 600 mg, QD
     Route: 048
  10. JUVELA N [Concomitant]
     Indication: HYPERLIPIDAEMIA
     Dosage: 600 mg, QD
     Route: 048
  11. GLAKAY [Concomitant]
     Indication: OSTEOPOROSIS
     Dosage: 45 mg, QD
     Route: 048
  12. LEVOGLUTAMIDE (+) SODIUM GUALENATE [Concomitant]
     Indication: PROPHYLAXIS
     Dosage: FORMULATION: GRA (UNSPECIFIED) cumulative dose 9 g
     Route: 048
     Dates: start: 20120501, end: 20120524
  13. DICLOFENAC [Concomitant]
     Indication: PROPHYLAXIS
     Dosage: 37.5 mg, qd (cumulative dose 337.5 mg)
     Route: 048
     Dates: start: 20120501, end: 20120512
  14. HUSCODE [Concomitant]
     Dosage: START INTERVAL: 7 DAY; STOP INTERVAL: 7 DAY; DURATION: 1 DAY
     Route: 048
     Dates: start: 20120503, end: 20120503
  15. MENTAX [Concomitant]
     Indication: PROPHYLAXIS
     Dosage: UNK, Formulation: OIT
     Route: 061
     Dates: start: 20120503
  16. FUROSEMIDE [Concomitant]
     Indication: OEDEMA
     Dosage: 20 mg, qd
     Route: 048
     Dates: start: 20120618
  17. DETOMEFAN [Concomitant]
     Dosage: 30 mg, qd prn
     Route: 048
     Dates: start: 20120503, end: 20120510
  18. BEPOTASTINE [Concomitant]
     Indication: PROPHYLAXIS
     Dosage: 20 mg, qd
     Route: 048
     Dates: end: 20120912

REACTIONS (4)
  - Skin disorder [Not Recovered/Not Resolved]
  - Haemoglobin decreased [Unknown]
  - Haemoglobin decreased [Not Recovered/Not Resolved]
  - Haemoglobin decreased [Recovered/Resolved]
